FAERS Safety Report 16301308 (Version 2)
Quarter: 2019Q3

REPORT INFORMATION
  Report Type: Report from Study
  Country: US (occurrence: US)
  Receive Date: 20190510
  Receipt Date: 20190822
  Transmission Date: 20191004
  Serious: Yes (Other)
  Sender: FDA-Public Use
  Company Number: PHEH2019US019872

PATIENT
  Sex: Male

DRUGS (1)
  1. GILENYA [Suspect]
     Active Substance: FINGOLIMOD HYDROCHLORIDE
     Indication: MULTIPLE SCLEROSIS
     Dosage: 0.5 MG, QD
     Route: 048

REACTIONS (11)
  - Fall [Unknown]
  - Gastrooesophageal reflux disease [Unknown]
  - Chest pain [Unknown]
  - Back pain [Unknown]
  - Dyspepsia [Unknown]
  - Mobility decreased [Unknown]
  - Arthritis [Unknown]
  - Hip fracture [Unknown]
  - Chest discomfort [Unknown]
  - Blood pressure decreased [Unknown]
  - Femur fracture [Unknown]
